FAERS Safety Report 12328324 (Version 1)
Quarter: 2016Q2

REPORT INFORMATION
  Report Type: Spontaneous
  Country: BR (occurrence: BR)
  Receive Date: 20160503
  Receipt Date: 20160503
  Transmission Date: 20160815
  Serious: Yes (Other)
  Sender: FDA-Public Use
  Company Number: BR-PFIZER INC-2014039419

PATIENT
  Age: 78 Year
  Sex: Male
  Weight: 66 kg

DRUGS (9)
  1. OMEPRAZOLE. [Concomitant]
     Active Substance: OMEPRAZOLE
     Dosage: UNK, (STRENGTH 20 MG)
     Dates: start: 2014
  2. SUTENT [Suspect]
     Active Substance: SUNITINIB MALATE
     Indication: GASTROINTESTINAL STROMAL TUMOUR
     Dosage: 37.5 MG, 1X/DAY (12.5 MG PLUS 25 MG)(CONTINUOUS USE)
     Route: 048
     Dates: start: 201311
  3. SUTENT [Suspect]
     Active Substance: SUNITINIB MALATE
     Dosage: 50 MG, DAILY
  4. SUTENT [Suspect]
     Active Substance: SUNITINIB MALATE
     Dosage: 37.5 MG, 1X/DAY (12.5 MG PLUS 25 MG)(CONTINUOUS USE)
     Route: 048
     Dates: start: 201311
  5. FLUIMICIL [Concomitant]
     Active Substance: ACETYLCYSTEINE
     Dosage: UNK, AT NIGHT
  6. TENSALIV [Concomitant]
     Active Substance: AMLODIPINE BESYLATE
     Dosage: 5 MG, DAILY
  7. AMLODIPINE [Concomitant]
     Active Substance: AMLODIPINE BESYLATE
     Indication: BLOOD PRESSURE MEASUREMENT
     Dosage: UNK, (STRENGTH 5 MG)
  8. AMLODIPINE BESILATE [Concomitant]
     Active Substance: AMLODIPINE BESYLATE
     Dosage: UNK, IN THE MORNING
  9. FORASEQ [Concomitant]
     Active Substance: BUDESONIDE\FORMOTEROL FUMARATE
     Dosage: UNK, 2X/DAY (STRENGTH 12 UG PLUS 400 UG)

REACTIONS (19)
  - Eating disorder [Recovered/Resolved]
  - Blister [Unknown]
  - Gingival pain [Recovered/Resolved]
  - Skin atrophy [Unknown]
  - Diarrhoea [Not Recovered/Not Resolved]
  - Vomiting [Unknown]
  - Glossodynia [Recovered/Resolved]
  - Toothache [Unknown]
  - Weight decreased [Unknown]
  - Pain in extremity [Unknown]
  - Oral pain [Recovered/Resolved]
  - Oropharyngeal pain [Recovered/Resolved]
  - Secretion discharge [Unknown]
  - Infarction [Recovered/Resolved]
  - Insomnia [Unknown]
  - Cataract [Unknown]
  - Skin exfoliation [Unknown]
  - Erythema [Not Recovered/Not Resolved]
  - Glossitis [Recovering/Resolving]

NARRATIVE: CASE EVENT DATE: 201406
